FAERS Safety Report 7643523-4 (Version None)
Quarter: 2011Q3

REPORT INFORMATION
  Report Type: 
  Country: None (occurrence: None)
  Receive Date: 20110729
  Receipt Date: 20110725
  Transmission Date: 20111222
  Serious: Yes (Other)
  Sender: FDA-Public Use
  Company Number: US-BAYER-2011-027553

PATIENT
  Age: 40 Year
  Sex: Female
  Weight: 50.794 kg

DRUGS (1)
  1. MIRENA [Suspect]
     Indication: CONTRACEPTION
     Dosage: 20 ?G/D, CONT
     Route: 015
     Dates: start: 20060601, end: 20110328

REACTIONS (3)
  - HUMAN PAPILLOMA VIRUS TEST POSITIVE [None]
  - CERVICAL DYSPLASIA [None]
  - SMEAR CERVIX ABNORMAL [None]
